FAERS Safety Report 6073199-1 (Version None)
Quarter: 2009Q1

REPORT INFORMATION
  Report Type: 
  Country: None (occurrence: None)
  Receive Date: 20090205
  Receipt Date: 20081215
  Transmission Date: 20090719
  Serious: Yes (Death, Hospitalization)
  Sender: FDA-Public Use
  Company Number: 2008EU002961

PATIENT
  Age: 42 Year
  Sex: Male
  Weight: 114 kg

DRUGS (7)
  1. PROGRAF [Suspect]
     Indication: LUNG TRANSPLANT
     Dosage: 2 MG, BID, ORAL
     Route: 048
  2. ZITHROMAX [Suspect]
     Dosage: 500 MG, BID
  3. CELLCEPT [Suspect]
     Dosage: 1.5 MG, BID, ORAL
     Route: 048
  4. PRAVASTATIN SODIUM [Suspect]
     Dosage: 40 MG, UNKNOWN/D, ORAL
     Route: 048
  5. INEXIUM(ESOMEPRAZOLE SODIUM) [Suspect]
     Dosage: 1 DF, UID/QD, ORAL
     Route: 048
  6. PREDNISONE [Suspect]
     Dosage: 10 MG, UNKNOWN/D, ORAL
     Route: 048
  7. HYDROCORTISONE [Suspect]
     Dosage: 10 MG, UNKNOWN/D, ORAL
     Route: 048

REACTIONS (10)
  - BLINDNESS CORTICAL [None]
  - BLOOD PH INCREASED [None]
  - CEREBROVASCULAR ACCIDENT [None]
  - DIALYSIS [None]
  - PANCREATITIS ACUTE [None]
  - PCO2 DECREASED [None]
  - PO2 DECREASED [None]
  - RENAL FAILURE [None]
  - RENAL TUBULAR NECROSIS [None]
  - SEPTIC SHOCK [None]
